FAERS Safety Report 9750913 (Version 2)
Quarter: 2013Q4

REPORT INFORMATION
  Report Type: Spontaneous
  Country: US (occurrence: US)
  Receive Date: 20131212
  Receipt Date: 20131212
  Transmission Date: 20140711
  Serious: No
  Sender: FDA-Public Use
  Company Number: US-TEVA-400334USA

PATIENT
  Age: 33 Year
  Sex: Female
  Weight: 99.88 kg

DRUGS (2)
  1. PARAGARD 380A [Suspect]
     Indication: CONTRACEPTION
     Route: 015
     Dates: start: 20130206, end: 20130422
  2. LABETALOL [Concomitant]
     Indication: HYPERTENSION

REACTIONS (2)
  - Metrorrhagia [Not Recovered/Not Resolved]
  - Dyspareunia [Unknown]
